FAERS Safety Report 20946920 (Version 2)
Quarter: 2022Q2

REPORT INFORMATION
  Report Type: Spontaneous
  Country: US (occurrence: US)
  Receive Date: 20220610
  Receipt Date: 20220623
  Transmission Date: 20220720
  Serious: No
  Sender: FDA-Public Use
  Company Number: US-BRISTOL-MYERS SQUIBB COMPANY-2022-053369

PATIENT
  Age: 70 Year
  Sex: Male

DRUGS (1)
  1. REVLIMID [Suspect]
     Active Substance: LENALIDOMIDE
     Indication: Plasma cell myeloma
     Dosage: BATCH NUMBER:A3572A?EXPIRY DATE:31-JAN-2024
     Route: 048
     Dates: start: 20220225

REACTIONS (3)
  - Constipation [Not Recovered/Not Resolved]
  - Solar lentigo [Not Recovered/Not Resolved]
  - Off label use [Unknown]
